FAERS Safety Report 7852201-8 (Version None)
Quarter: 2011Q4

REPORT INFORMATION
  Report Type: 
  Country: None (occurrence: None)
  Receive Date: 20111026
  Receipt Date: 20111012
  Transmission Date: 20120403
  Serious: Yes (Hospitalization, Other)
  Sender: FDA-Public Use
  Company Number: US-ELI_LILLY_AND_COMPANY-US201105003020

PATIENT
  Sex: Male
  Weight: 57.143 kg

DRUGS (5)
  1. AMBIEN [Concomitant]
  2. SOMA [Concomitant]
  3. OXYCODONE HCL [Concomitant]
  4. FORTEO [Suspect]
     Dosage: 20 UG, QD
     Route: 058
     Dates: end: 20110810
  5. FORTEO [Suspect]
     Indication: OSTEOPOROSIS
     Dosage: 20 UG, QD
     Route: 058
     Dates: start: 20110411

REACTIONS (8)
  - JAW FRACTURE [None]
  - HYPERHIDROSIS [None]
  - HEART RATE DECREASED [None]
  - PATHOLOGICAL FRACTURE [None]
  - INSOMNIA [None]
  - HYPOTENSION [None]
  - DYSPNOEA [None]
  - FALL [None]
